FAERS Safety Report 10290049 (Version 4)
Quarter: 2014Q4

REPORT INFORMATION
  Report Type: Spontaneous
  Country: IT (occurrence: IT)
  Receive Date: 20140710
  Receipt Date: 20141001
  Transmission Date: 20150528
  Serious: Yes (Hospitalization, Other)
  Sender: FDA-Public Use
  Company Number: IT-PFIZER INC-2014187706

PATIENT
  Age: 42 Year
  Sex: Female
  Weight: 64.8 kg

DRUGS (6)
  1. CYMBALTA [Suspect]
     Active Substance: DULOXETINE HYDROCHLORIDE
     Dosage: LARGE NUMBER
     Route: 048
     Dates: start: 20140617, end: 20140617
  2. ABILIFY [Suspect]
     Active Substance: ARIPIPRAZOLE
     Dosage: UNK
     Route: 048
     Dates: start: 20140617, end: 20140617
  3. QUETIAPINE FUMARATE. [Suspect]
     Active Substance: QUETIAPINE FUMARATE
     Dosage: UNK
     Route: 048
     Dates: start: 20140617, end: 20140617
  4. VALDORM [Suspect]
     Active Substance: VALERIAN
     Dosage: UNK
     Route: 048
     Dates: start: 20140617, end: 20140617
  5. ZELDOX [Suspect]
     Active Substance: ZIPRASIDONE
     Dosage: UNK
  6. DEPAKENE [Suspect]
     Active Substance: VALPROIC ACID
     Dosage: UNK
     Route: 048
     Dates: start: 20140617, end: 20140617

REACTIONS (4)
  - Suicide attempt [Recovering/Resolving]
  - Drug abuse [Recovering/Resolving]
  - Coma [Recovering/Resolving]
  - Depressive symptom [Unknown]

NARRATIVE: CASE EVENT DATE: 201406
